FAERS Safety Report 21104885 (Version 2)
Quarter: 2022Q3

REPORT INFORMATION
  Report Type: Report from Study
  Country: US (occurrence: US)
  Receive Date: 20220720
  Receipt Date: 20220805
  Transmission Date: 20221027
  Serious: Yes (Other)
  Sender: FDA-Public Use
  Company Number: US-VERTEX PHARMACEUTICALS-2022-010498

PATIENT
  Age: 11 Year
  Sex: Female
  Weight: 51 kg

DRUGS (11)
  1. TRIKAFTA [Suspect]
     Active Substance: ELEXACAFTOR\IVACAFTOR\TEZACAFTOR
     Indication: Cystic fibrosis
     Dosage: 2 ORANGE TABS,AM/1 BLUE TAB,PM
     Route: 048
     Dates: start: 20210903, end: 202207
  2. OMEGA 3,6+9 [Concomitant]
     Dosage: 40-60MG-10 CAP
  3. CREON [Concomitant]
     Active Substance: PANCRELIPASE AMYLASE\PANCRELIPASE LIPASE\PANCRELIPASE PROTEASE
     Dosage: 24-76-120K CAP DR
  4. HYDROXYZINE HYDROCHLORIDE [Concomitant]
     Active Substance: HYDROXYZINE HYDROCHLORIDE
     Dosage: 10 MG TAB
  5. FAMOTIDINE [Concomitant]
     Active Substance: FAMOTIDINE
     Dosage: 10 MG TAB
  6. ADDERALL [Concomitant]
     Active Substance: AMPHETAMINE ASPARTATE\AMPHETAMINE SULFATE\DEXTROAMPHETAMINE SACCHARATE\DEXTROAMPHETAMINE SULFATE
     Dosage: 12.5 MG TAB
  7. LORATADINE [Concomitant]
     Active Substance: LORATADINE
     Dosage: 10 MG TAB
  8. SODIUM CHLORIDE [Concomitant]
     Active Substance: SODIUM CHLORIDE
     Dosage: 3.5 % VIAL NEB
     Route: 055
  9. ALBUTEROL SULFATE [Concomitant]
     Active Substance: ALBUTEROL SULFATE
  10. VITAMIN D3 [Concomitant]
     Active Substance: CHOLECALCIFEROL
     Dosage: 10MCG TAB
  11. VITAMIN C [Concomitant]
     Active Substance: ASCORBIC ACID
     Dosage: 1000 MG TAB

REACTIONS (3)
  - Suicidal ideation [Recovering/Resolving]
  - Irritability [Recovering/Resolving]
  - Social avoidant behaviour [Recovering/Resolving]

NARRATIVE: CASE EVENT DATE: 20210901
